FAERS Safety Report 6126040-2 (Version None)
Quarter: 2009Q1

REPORT INFORMATION
  Report Type: 
  Country: None (occurrence: None)
  Receive Date: 20090320
  Receipt Date: 20090313
  Transmission Date: 20090719
  Serious: Yes (Life-Threatening)
  Sender: FDA-Public Use
  Company Number: JP-ROCHE-612782

PATIENT
  Sex: Male
  Weight: 60 kg

DRUGS (5)
  1. RIVOTRIL [Suspect]
     Indication: EPILEPSY
     Route: 048
     Dates: start: 20080101, end: 20080127
  2. DEPAKENE [Suspect]
     Indication: EPILEPSY
     Dosage: FORM: SUSTAINED RELEASE TABLET
     Route: 048
     Dates: start: 19890101, end: 20090127
  3. LAMICTAL [Suspect]
     Indication: EPILEPSY
     Route: 048
     Dates: start: 20090104, end: 20090126
  4. TEGRETOL [Concomitant]
     Route: 048
     Dates: start: 20080101, end: 20090127
  5. CLOBAZAM [Concomitant]
     Dosage: DRUG REPORTED AS MYSTAN
     Route: 048
     Dates: start: 20080101, end: 20090127

REACTIONS (1)
  - TOXIC EPIDERMAL NECROLYSIS [None]
